FAERS Safety Report 5471052-5 (Version None)
Quarter: 2007Q3

REPORT INFORMATION
  Report Type: 
  Country: None (occurrence: None)
  Receive Date: 20070928
  Receipt Date: 20061109
  Transmission Date: 20080115
  Serious: No
  Sender: FDA-Public Use
  Company Number: A0624923A

PATIENT
  Age: 22 Year
  Sex: Female

DRUGS (3)
  1. LAMOTRIGINE [Suspect]
     Indication: BIPOLAR DISORDER
     Dosage: 25MG TWICE PER DAY
     Route: 048
     Dates: start: 20061005, end: 20061024
  2. LITHIUM [Concomitant]
  3. ALEVE [Concomitant]

REACTIONS (3)
  - DIARRHOEA [None]
  - LOCAL SWELLING [None]
  - STOMACH DISCOMFORT [None]
